FAERS Safety Report 18165567 (Version 4)
Quarter: 2021Q1

REPORT INFORMATION
  Report Type: Spontaneous
  Country: US (occurrence: US)
  Receive Date: 20200818
  Receipt Date: 20210211
  Transmission Date: 20210419
  Serious: Yes (Hospitalization, Other)
  Sender: FDA-Public Use
  Company Number: US-BIOCODEX SA-202001091

PATIENT

DRUGS (7)
  1. OXCARBAZEPINE. [Concomitant]
     Active Substance: OXCARBAZEPINE
     Indication: PRODUCT USED FOR UNKNOWN INDICATION
     Route: 065
  2. EPIDIOLEX [Concomitant]
     Active Substance: CANNABIDIOL
     Indication: PRODUCT USED FOR UNKNOWN INDICATION
     Route: 065
  3. DIACOMIT [Suspect]
     Active Substance: STIRIPENTOL
     Indication: IDIOPATHIC GENERALISED EPILEPSY
     Dosage: TWO PACKETS OF 250MG EVERY 12 HOURS
     Route: 048
     Dates: start: 20190829
  4. DIACOMIT [Suspect]
     Active Substance: STIRIPENTOL
     Dosage: 525MG EVERY 12HOURS
     Route: 065
  5. OMEPRAZOLE. [Concomitant]
     Active Substance: OMEPRAZOLE
     Indication: PRODUCT USED FOR UNKNOWN INDICATION
     Route: 065
  6. DIACOMIT [Suspect]
     Active Substance: STIRIPENTOL
     Dosage: TWO DOSAGE FORMS AND HALF EVERY 12HOURS
     Route: 065
  7. BRIVIACT [Concomitant]
     Active Substance: BRIVARACETAM
     Indication: PRODUCT USED FOR UNKNOWN INDICATION
     Route: 065

REACTIONS (4)
  - Weight decreased [Unknown]
  - Product use in unapproved indication [Unknown]
  - Seizure [Unknown]
  - Eating disorder [Unknown]

NARRATIVE: CASE EVENT DATE: 20190828
